FAERS Safety Report 9333217 (Version 1)
Quarter: 2013Q2

REPORT INFORMATION
  Report Type: Spontaneous
  Country: AU (occurrence: AU)
  Receive Date: 20130606
  Receipt Date: 20130606
  Transmission Date: 20140414
  Serious: Yes (Death, Hospitalization)
  Sender: FDA-Public Use
  Company Number: AU-ELI_LILLY_AND_COMPANY-AU201302004392

PATIENT
  Age: 83 Year
  Sex: Female

DRUGS (1)
  1. FORTEO [Suspect]
     Indication: OSTEOPOROSIS
     Dosage: 20UG, DAILY
     Dates: start: 20120726

REACTIONS (8)
  - Pneumonia [Fatal]
  - Pneumonia [Recovered/Resolved]
  - Malaise [Recovered/Resolved]
  - Eating disorder [Unknown]
  - Decreased appetite [Unknown]
  - Weight decreased [Unknown]
  - Dysgeusia [Unknown]
  - Feeling abnormal [Unknown]
